FAERS Safety Report 10188655 (Version 1)
Quarter: 2014Q2

REPORT INFORMATION
  Report Type: Spontaneous
  Country: US (occurrence: US)
  Receive Date: 20140522
  Receipt Date: 20140522
  Transmission Date: 20141212
  Serious: No
  Sender: FDA-Public Use
  Company Number: US-SA-2014SA017587

PATIENT
  Age: 55 Year
  Sex: Female
  Weight: 81.19 kg

DRUGS (3)
  1. LANTUS SOLOSTAR [Suspect]
     Indication: TYPE 2 DIABETES MELLITUS
     Dosage: TAKEN SINCE LAST YEAR DOSE:34 UNIT(S)
     Route: 051
     Dates: start: 2013
  2. LANTUS SOLOSTAR [Suspect]
     Indication: TYPE 2 DIABETES MELLITUS
     Dosage: TAKEN SINCE LAST YEAR DOSE:20 UNIT(S)
     Route: 051
  3. SOLOSTAR [Concomitant]
     Indication: TYPE 2 DIABETES MELLITUS
     Dosage: TAKEN SINCE LAST YEAR
     Dates: start: 2013

REACTIONS (2)
  - Back pain [Unknown]
  - Blood glucose increased [Unknown]
